FAERS Safety Report 9898828 (Version 2)
Quarter: 2014Q1

REPORT INFORMATION
  Report Type: Spontaneous
  Country: US (occurrence: US)
  Receive Date: 20140214
  Receipt Date: 20140214
  Transmission Date: 20141002
  Serious: No
  Sender: FDA-Public Use
  Company Number: US-GILEAD-2011-0047729

PATIENT
  Age: 38 Year
  Sex: Female

DRUGS (3)
  1. LETAIRIS [Suspect]
     Indication: PRODUCT USED FOR UNKNOWN INDICATION
     Dosage: 5 MG, UNK
     Route: 048
  2. TYVASO [Concomitant]
  3. ADCIRCA [Concomitant]

REACTIONS (5)
  - Dizziness [Unknown]
  - Unevaluable event [Unknown]
  - Night sweats [Unknown]
  - Hyperhidrosis [Unknown]
  - Haemoglobin decreased [Unknown]
